FAERS Safety Report 26048455 (Version 2)
Quarter: 2025Q4

REPORT INFORMATION
  Report Type: Report from Study
  Country: US (occurrence: US)
  Receive Date: 20251114
  Receipt Date: 20251202
  Transmission Date: 20260118
  Serious: No
  Sender: BIOGEN
  Company Number: US-BIOGEN-2090134

PATIENT
  Age: 31 Year
  Sex: Female

DRUGS (1)
  1. ZURZUVAE [Suspect]
     Active Substance: ZURANOLONE
     Indication: Perinatal depression
     Dates: start: 20251102

REACTIONS (7)
  - Nausea [Unknown]
  - Visual acuity reduced [Unknown]
  - Somnolence [Unknown]
  - Asthenia [Unknown]
  - Discomfort [Unknown]
  - Sedation [Unknown]
  - Dizziness [Unknown]
